FAERS Safety Report 15734831 (Version 3)
Quarter: 2019Q1

REPORT INFORMATION
  Report Type: Spontaneous
  Country: US (occurrence: US)
  Receive Date: 20181218
  Receipt Date: 20190215
  Transmission Date: 20190417
  Serious: Yes (Other)
  Sender: FDA-Public Use
  Company Number: US-TEVA-2018-US-987786

PATIENT
  Sex: Female

DRUGS (5)
  1. AMLODIPINE BESYLATE. [Suspect]
     Active Substance: AMLODIPINE BESYLATE
     Indication: BLOOD PRESSURE ABNORMAL
     Dosage: 10 MILLIGRAM DAILY;
     Route: 065
  2. VALSARTAN. [Concomitant]
     Active Substance: VALSARTAN
  3. CLONIPINE [Concomitant]
     Active Substance: CLONAZEPAM
     Dosage: FREQUENCY: QHS
  4. LOSARTAN/HCTZ [Concomitant]
     Active Substance: HYDROCHLOROTHIAZIDE\LOSARTAN
     Dosage: 100 MILLIGRAM DAILY;
  5. TOPRAMAX [Concomitant]
     Indication: MIGRAINE
     Dosage: 200 MILLIGRAM DAILY;

REACTIONS (4)
  - Hypertension [Not Recovered/Not Resolved]
  - Gait disturbance [Unknown]
  - Dizziness [Unknown]
  - Loss of personal independence in daily activities [Unknown]
